FAERS Safety Report 17684212 (Version 1)
Quarter: 2020Q2

REPORT INFORMATION
  Report Type: Spontaneous
  Country: CH (occurrence: CH)
  Receive Date: 20200420
  Receipt Date: 20200420
  Transmission Date: 20200714
  Serious: Yes (Hospitalization, Other)
  Sender: FDA-Public Use
  Company Number: CH-SA-2020SA098970

PATIENT
  Age: 54 Year
  Sex: Male

DRUGS (26)
  1. STILNOX [Suspect]
     Active Substance: ZOLPIDEM TARTRATE
     Dosage: 10 MG, PRN
     Route: 065
     Dates: start: 20200319
  2. MYCOPHENOLATE MOFETIL. [Suspect]
     Active Substance: MYCOPHENOLATE MOFETIL
     Dosage: 1000 MG, BID
     Route: 065
     Dates: start: 20200319
  3. METHYLPREDNISOLONE SODIUM SUCCINATE. [Suspect]
     Active Substance: METHYLPREDNISOLONE SODIUM SUCCINATE
     Dosage: 250 MG, QD
     Route: 041
     Dates: start: 20200313, end: 20200327
  4. FLUCONAZOLE. [Suspect]
     Active Substance: FLUCONAZOLE
     Dosage: 200 MG, QW
     Route: 065
     Dates: start: 20200313
  5. MORPHINE [Concomitant]
     Active Substance: MORPHINE
     Dosage: 5 MG, BID
     Dates: start: 20200211, end: 20200220
  6. STILNOX [Suspect]
     Active Substance: ZOLPIDEM TARTRATE
     Dosage: 10 MG, PRN
     Route: 065
     Dates: start: 20200315
  7. METHYLPREDNISOLONE SODIUM SUCCINATE. [Suspect]
     Active Substance: METHYLPREDNISOLONE SODIUM SUCCINATE
     Dosage: 90 MG, QD
     Route: 041
     Dates: start: 20200329
  8. FRAGMIN [Suspect]
     Active Substance: DALTEPARIN SODIUM
     Dosage: 7500 IU, QD
     Route: 065
     Dates: start: 20200311
  9. HUMALOG [Concomitant]
     Active Substance: INSULIN LISPRO
     Dosage: 4 IU, PRN
     Dates: start: 20200313
  10. CARBOPLATIN. [Concomitant]
     Active Substance: CARBOPLATIN
     Dosage: UNK
     Dates: start: 20200219
  11. ETOPOPHOS [Concomitant]
     Active Substance: ETOPOSIDE PHOSPHATE
     Dosage: 192 MG
     Dates: start: 20200219, end: 20200221
  12. STILNOX [Suspect]
     Active Substance: ZOLPIDEM TARTRATE
     Dosage: 10 MG, PRN
     Route: 065
     Dates: start: 20200312
  13. STILNOX [Suspect]
     Active Substance: ZOLPIDEM TARTRATE
     Dosage: 10 MG, PRN
     Route: 065
     Dates: start: 20200313
  14. VALACICLOVIR [Suspect]
     Active Substance: VALACYCLOVIR HYDROCHLORIDE
     Dosage: 500 MG, BID
     Route: 065
     Dates: start: 20200319
  15. METHYLPREDNISOLONE SODIUM SUCCINATE. [Suspect]
     Active Substance: METHYLPREDNISOLONE SODIUM SUCCINATE
     Dosage: 100 MG, QD
     Route: 041
     Dates: start: 20200328, end: 20200330
  16. SULFAMETHOXAZOLE/TRIMETHOPRIM [Suspect]
     Active Substance: SULFAMETHOXAZOLE\TRIMETHOPRIM
     Dosage: 800 MG, BID
     Route: 065
     Dates: start: 20200313
  17. KCL HAUSMANN [Concomitant]
     Dosage: 20 MMOL, TID
     Dates: start: 20200316, end: 20200401
  18. STILNOX [Suspect]
     Active Substance: ZOLPIDEM TARTRATE
     Dosage: 10 MG, PRN
     Route: 065
     Dates: start: 20200310
  19. STILNOX [Suspect]
     Active Substance: ZOLPIDEM TARTRATE
     Dosage: 10 MG, PRN
     Route: 065
     Dates: start: 20200317
  20. MYCOPHENOLATE MOFETIL. [Suspect]
     Active Substance: MYCOPHENOLATE MOFETIL
     Dosage: 500 MG, BID
     Route: 065
     Dates: start: 20200313, end: 20200318
  21. HYDROMORPHONE HYDROCHLORIDE. [Suspect]
     Active Substance: HYDROMORPHONE HYDROCHLORIDE
     Dosage: 1 MG, BID
     Dates: start: 20200321, end: 20200325
  22. PHOSPHATE SANDOZ [Concomitant]
     Active Substance: SODIUM PHOSPHATE, MONOBASIC, ANHYDROUS
     Dosage: 500 MG, BID
     Dates: start: 20200316
  23. STILNOX [Suspect]
     Active Substance: ZOLPIDEM TARTRATE
     Dosage: 10 MG, PRN
     Route: 065
     Dates: start: 20200325
  24. TECENTRIQ [Suspect]
     Active Substance: ATEZOLIZUMAB
     Dosage: 1200 MG, QCY
     Route: 065
     Dates: start: 20200219, end: 20200219
  25. GRAFALON [Suspect]
     Active Substance: LAPINE T-LYMPHOCYTE IMMUNE GLOBULIN
     Dosage: 125 MG, PRN
     Route: 065
     Dates: start: 20200320, end: 20200328
  26. PANTOZOL [Suspect]
     Active Substance: PANTOPRAZOLE SODIUM
     Dosage: 40 MG, QD
     Route: 065
     Dates: start: 20200311

REACTIONS (6)
  - Autoimmune hepatitis [Not Recovered/Not Resolved]
  - Contraindicated product administered [Unknown]
  - Hepatitis cholestatic [Not Recovered/Not Resolved]
  - Off label use [Unknown]
  - Cholangitis [Not Recovered/Not Resolved]
  - Pancreatitis [Recovered/Resolved]

NARRATIVE: CASE EVENT DATE: 20200310
